FAERS Safety Report 6977906-2 (Version None)
Quarter: 2010Q3

REPORT INFORMATION
  Report Type: 
  Country: None (occurrence: None)
  Receive Date: 20100913
  Receipt Date: 20100901
  Transmission Date: 20110219
  Serious: No
  Sender: FDA-Public Use
  Company Number: US-US-EMD SERONO, INC.-230775J10USA

PATIENT
  Sex: Female

DRUGS (4)
  1. REBIF [Suspect]
     Indication: MULTIPLE SCLEROSIS
     Route: 058
     Dates: start: 20090714
  2. REBIF [Suspect]
     Route: 058
     Dates: end: 20100829
  3. ZYRTEC [Concomitant]
     Indication: PREMEDICATION
  4. ALEVE (CAPLET) [Concomitant]
     Indication: PREMEDICATION

REACTIONS (3)
  - HYPERSENSITIVITY [None]
  - INJECTION SITE REACTION [None]
  - OPTIC NEURITIS [None]
